FAERS Safety Report 6180389-6 (Version None)
Quarter: 2009Q2

REPORT INFORMATION
  Report Type: 
  Country: None (occurrence: None)
  Receive Date: 20090506
  Receipt Date: 20090423
  Transmission Date: 20091009
  Serious: Yes (Other)
  Sender: FDA-Public Use
  Company Number: US-PFIZER INC-2009204890

PATIENT
  Sex: Male
  Weight: 45 kg

DRUGS (5)
  1. GEODON [Suspect]
     Indication: AFFECTIVE DISORDER
     Dates: start: 20090313, end: 20090401
  2. ZYPREXA [Concomitant]
  3. COGENTIN [Concomitant]
  4. LAMICTAL [Concomitant]
     Dosage: UNK
  5. ADDERALL 10 [Concomitant]
     Dosage: UNK

REACTIONS (3)
  - DYSKINESIA [None]
  - MUSCLE SPASTICITY [None]
  - SOMNOLENCE [None]
